FAERS Safety Report 5028511-9 (Version None)
Quarter: 2006Q2

REPORT INFORMATION
  Report Type: 
  Country: None (occurrence: None)
  Receive Date: 20060617
  Receipt Date: 20060607
  Transmission Date: 20061013
  Serious: Yes (Life-Threatening, Other)
  Sender: FDA-Public Use
  Company Number: FR-BRISTOL-MYERS SQUIBB COMPANY-13411467

PATIENT
  Age: 86 Year
  Sex: Female

DRUGS (3)
  1. GLUCOPHAGE [Suspect]
     Indication: DIABETES MELLITUS
     Route: 048
     Dates: end: 20060517
  2. AMARYL [Suspect]
     Route: 048
     Dates: end: 20060517
  3. ALDALIX [Concomitant]
     Route: 048
     Dates: end: 20060518

REACTIONS (8)
  - BRONCHITIS [None]
  - COMA [None]
  - HYPOGLYCAEMIA [None]
  - LOSS OF CONSCIOUSNESS [None]
  - LUNG DISORDER [None]
  - MUSCULOSKELETAL DISCOMFORT [None]
  - SPINAL CORD COMPRESSION [None]
  - TACHYPNOEA [None]
